FAERS Safety Report 5076738-2 (Version None)
Quarter: 2006Q3

REPORT INFORMATION
  Report Type: 
  Country: None (occurrence: None)
  Receive Date: 20060810
  Receipt Date: 20060727
  Transmission Date: 20061208
  Serious: Yes (Life-Threatening, Hospitalization)
  Sender: FDA-Public Use
  Company Number: DE-AVENTIS-200612212DE

PATIENT
  Sex: Female
  Weight: 67 kg

DRUGS (2)
  1. AMARYL [Suspect]
     Indication: DIABETES MELLITUS NON-INSULIN-DEPENDENT
     Route: 048
     Dates: start: 20020101, end: 20060501
  2. OXYBUTYNIN [Concomitant]

REACTIONS (1)
  - HYPOGLYCAEMIC COMA [None]
